FAERS Safety Report 25761684 (Version 1)
Quarter: 2025Q3

REPORT INFORMATION
  Report Type: Spontaneous
  Country: CA (occurrence: CA)
  Receive Date: 20250904
  Receipt Date: 20250904
  Transmission Date: 20251021
  Serious: Yes (Hospitalization)
  Sender: BIOMARIN
  Company Number: CA-SA-2025SA259063

PATIENT
  Age: 16 Year
  Sex: Male
  Weight: 80.2 kg

DRUGS (1)
  1. LARONIDASE [Suspect]
     Active Substance: LARONIDASE
     Indication: Mucopolysaccharidosis I
     Dosage: 89.9 MG, QOW
     Dates: start: 20120221

REACTIONS (4)
  - Tendon operation [Unknown]
  - Ligament operation [Unknown]
  - Procedural pain [Unknown]
  - Off label use [Unknown]

NARRATIVE: CASE EVENT DATE: 20120221
